FAERS Safety Report 7659986-4 (Version None)
Quarter: 2011Q3

REPORT INFORMATION
  Report Type: 
  Country: None (occurrence: None)
  Receive Date: 20110805
  Receipt Date: 20110804
  Transmission Date: 20111222
  Serious: Yes (Hospitalization)
  Sender: FDA-Public Use
  Company Number: US-BRISTOL-MYERS SQUIBB COMPANY-15948664

PATIENT
  Age: 48 Year
  Sex: Female
  Weight: 110 kg

DRUGS (6)
  1. SIMVASTATIN [Concomitant]
  2. WELLBUTRIN [Concomitant]
  3. XANAX [Concomitant]
  4. ORENCIA [Suspect]
     Indication: RHEUMATOID ARTHRITIS
     Dosage: LAST INF: ON 27JUN2011
     Dates: start: 20100501
  5. METHOTREXATE [Concomitant]
  6. LISINOPRIL AND HYDROCHLOROTHIAZIDE [Concomitant]

REACTIONS (1)
  - PANCREATITIS ACUTE [None]
